FAERS Safety Report 7294942-X (Version None)
Quarter: 2011Q1

REPORT INFORMATION
  Report Type: 
  Country: None (occurrence: None)
  Receive Date: 20110207
  Receipt Date: 20110125
  Transmission Date: 20110831
  Serious: Yes (Death, Other)
  Sender: FDA-Public Use
  Company Number: KADN20110002

PATIENT
  Age: 24 Year
  Sex: Female

DRUGS (2)
  1. MORPHINE [Suspect]
     Dosage: PER ORAL
     Route: 048
     Dates: end: 20080101
  2. ACETAMINOPHEN [Concomitant]

REACTIONS (5)
  - TAKAYASU'S ARTERITIS [None]
  - DISEASE COMPLICATION [None]
  - INTENTIONAL DRUG MISUSE [None]
  - PULMONARY INFARCTION [None]
  - CARDIO-RESPIRATORY ARREST [None]
